FAERS Safety Report 5485527-6 (Version None)
Quarter: 2007Q4

REPORT INFORMATION
  Report Type: 
  Country: None (occurrence: None)
  Receive Date: 20071010
  Receipt Date: 20071010
  Transmission Date: 20080405
  Serious: Yes (Other)
  Sender: FDA-Public Use
  Company Number: None

PATIENT
  Sex: Male
  Weight: 79.3795 kg

DRUGS (1)
  1. CHANTIX [Suspect]
     Indication: SMOKING CESSATION THERAPY
     Dosage: 1 MG TWICE ADAY PO
     Route: 048
     Dates: start: 20070717, end: 20070906

REACTIONS (5)
  - AGGRESSION [None]
  - ASTHENIA [None]
  - BLOOD PRESSURE DECREASED [None]
  - DEPRESSION [None]
  - HEADACHE [None]
